FAERS Safety Report 4810077-7 (Version None)
Quarter: 2005Q4

REPORT INFORMATION
  Report Type: 
  Country: None (occurrence: None)
  Receive Date: 20051024
  Receipt Date: 20051024
  Transmission Date: 20060501
  Serious: Yes (Other)
  Sender: FDA-Public Use
  Company Number: None

PATIENT
  Sex: Female
  Weight: 63.5036 kg

DRUGS (1)
  1. LITHOBID [Suspect]
     Dosage: 1 CAPSULE EVERY 8 HOURS PO
     Route: 048

REACTIONS (3)
  - DYSMENORRHOEA [None]
  - PHOTOSENSITIVITY REACTION [None]
  - RASH GENERALISED [None]
